FAERS Safety Report 9556230 (Version 8)
Quarter: 2014Q3

REPORT INFORMATION
  Report Type: Spontaneous
  Country: AU (occurrence: None)
  Receive Date: 20130924
  Receipt Date: 20140922
  Transmission Date: 20150326
  Serious: Yes (Hospitalization, Other)
  Sender: FDA-Public Use
  Company Number: 2013AU002485

PATIENT
  Age: 66 Year
  Sex: Male
  Weight: 76 kg

DRUGS (3)
  1. PONATINIB [Suspect]
     Active Substance: PONATINIB
     Indication: CHRONIC MYELOID LEUKAEMIA
     Route: 048
     Dates: start: 20110928
  2. INSULIN (INSULIN) [Concomitant]
     Active Substance: INSULIN NOS
  3. METFORMIN [Concomitant]
     Active Substance: METFORMIN HYDROCHLORIDE

REACTIONS (6)
  - Aortic arteriosclerosis [None]
  - Peripheral arterial occlusive disease [None]
  - Peripheral vascular disorder [None]
  - Cerebral infarction [None]
  - Thrombolysis [None]
  - Cerebrovascular accident [None]

NARRATIVE: CASE EVENT DATE: 20130724
